FAERS Safety Report 24310173 (Version 2)
Quarter: 2024Q3

REPORT INFORMATION
  Report Type: Spontaneous
  Country: DE (occurrence: None)
  Receive Date: 20240912
  Receipt Date: 20240913
  Transmission Date: 20241017
  Serious: Yes (Other)
  Sender: ASTRAZENECA
  Company Number: 2024A204238

PATIENT
  Sex: Male

DRUGS (2)
  1. LYNPARZA [Suspect]
     Active Substance: OLAPARIB
     Indication: Prostate cancer
     Route: 048
  2. ABIRATERONE [Concomitant]
     Active Substance: ABIRATERONE

REACTIONS (2)
  - Off label use [Unknown]
  - Malignant neoplasm progression [Unknown]
